FAERS Safety Report 7525368-9 (Version None)
Quarter: 2011Q2

REPORT INFORMATION
  Report Type: 
  Country: None (occurrence: None)
  Receive Date: 20110606
  Receipt Date: 20110531
  Transmission Date: 20111010
  Serious: Yes (Hospitalization)
  Sender: FDA-Public Use
  Company Number: US-NOVOPROD-327722

PATIENT
  Sex: Male
  Weight: 66.7 kg

DRUGS (5)
  1. NOVORAPID FLEXPEN [Suspect]
     Dosage: 32 U, QD
     Route: 058
     Dates: start: 20101005
  2. INSULATARD FLEXPEN HM(GE) [Suspect]
     Indication: TYPE 1 DIABETES MELLITUS
     Dosage: 18 U, QD
     Route: 058
     Dates: start: 20100927, end: 20101004
  3. IDEG FLEXPEN [Suspect]
     Dosage: 20 U, QD
     Route: 058
     Dates: start: 20101005
  4. IDEG FLEXPEN [Suspect]
     Indication: TYPE 1 DIABETES MELLITUS
     Dosage: 18 U, QD
     Route: 058
     Dates: start: 20090928, end: 20100926
  5. NOVORAPID FLEXPEN [Suspect]
     Indication: TYPE 1 DIABETES MELLITUS
     Dosage: 30 U, QD
     Route: 058
     Dates: start: 20090928, end: 20101004

REACTIONS (2)
  - CONVULSION [None]
  - ROAD TRAFFIC ACCIDENT [None]
